FAERS Safety Report 14882743 (Version 1)
Quarter: 2018Q2

REPORT INFORMATION
  Report Type: Spontaneous
  Country: CA (occurrence: CA)
  Receive Date: 20180511
  Receipt Date: 20180511
  Transmission Date: 20180711
  Serious: Yes (Hospitalization, Other)
  Sender: FDA-Public Use
  Company Number: CA-PFIZER INC-2018154314

PATIENT
  Age: 56 Year
  Sex: Male

DRUGS (4)
  1. PANTOLOC /01263201/ [Concomitant]
     Active Substance: PANTOPRAZOLE SODIUM
     Indication: ABDOMINAL DISCOMFORT
     Dosage: UNK
     Dates: start: 2007
  2. PRO-AAS [Concomitant]
     Dosage: UNK
     Dates: start: 2007
  3. CELEBREX [Suspect]
     Active Substance: CELECOXIB
     Indication: ACCIDENT AT WORK
  4. CELEBREX [Suspect]
     Active Substance: CELECOXIB
     Indication: JOINT DISLOCATION
     Dosage: 600 OR 900 MG DAILY (IN 3 TIMES)
     Route: 048
     Dates: start: 200404, end: 20130218

REACTIONS (4)
  - Cardiac dysfunction [Unknown]
  - Chest pain [Unknown]
  - Myocardial infarction [Not Recovered/Not Resolved]
  - Vascular stent occlusion [Unknown]

NARRATIVE: CASE EVENT DATE: 20130218
